FAERS Safety Report 9328434 (Version 1)
Quarter: 2013Q2

REPORT INFORMATION
  Report Type: Spontaneous
  Country: US (occurrence: US)
  Receive Date: 20130604
  Receipt Date: 20130604
  Transmission Date: 20140414
  Serious: No
  Sender: FDA-Public Use
  Company Number: US-SANOFI-AVENTIS-2012SA068733

PATIENT
  Age: 66 Year
  Sex: Female
  Weight: 80 kg

DRUGS (16)
  1. LANTUS SOLOSTAR [Suspect]
     Indication: TYPE 2 DIABETES MELLITUS
     Dosage: DOSE:50 UNIT(S)
     Route: 058
     Dates: start: 20090112
  2. SOLOSTAR [Suspect]
     Indication: TYPE 2 DIABETES MELLITUS
     Dates: start: 20090112
  3. JANUMET [Concomitant]
  4. OMEPRAZOLE [Concomitant]
  5. ASPIRIN [Concomitant]
  6. DICYCLOMINE [Concomitant]
  7. TRAZODONE [Concomitant]
     Indication: ANXIETY
  8. ENALAPRIL [Concomitant]
     Indication: BLOOD PRESSURE
  9. METOPROLOL [Concomitant]
     Indication: BLOOD PRESSURE
  10. BUSPIRONE [Concomitant]
     Indication: ANXIETY
  11. MELOXICAM [Concomitant]
     Indication: ARTHRITIS
  12. ZOCOR [Concomitant]
     Indication: BLOOD CHOLESTEROL
  13. AMLODIPINE [Concomitant]
  14. VITAMIN D [Concomitant]
  15. LEVOTHYROXINE [Concomitant]
     Dates: start: 2011
  16. CYMBALTA [Concomitant]

REACTIONS (4)
  - Hearing impaired [Not Recovered/Not Resolved]
  - Insomnia [Unknown]
  - Stress [Unknown]
  - Visual impairment [Not Recovered/Not Resolved]
